FAERS Safety Report 6878014-1 (Version None)
Quarter: 2010Q3

REPORT INFORMATION
  Report Type: 
  Country: None (occurrence: None)
  Receive Date: 20100727
  Receipt Date: 20100719
  Transmission Date: 20110219
  Serious: Yes (Death, Life-Threatening, Hospitalization)
  Sender: FDA-Public Use
  Company Number: DE-ELI_LILLY_AND_COMPANY-DE201007001890

PATIENT
  Sex: Female

DRUGS (7)
  1. PEMETREXED [Suspect]
     Indication: NON-SMALL CELL LUNG CANCER
     Dosage: 500 MG/M2, DAY 1 EVERY 21 DAYS
     Route: 042
     Dates: start: 20100610
  2. CISPLATIN [Suspect]
     Indication: NON-SMALL CELL LUNG CANCER
     Dosage: 75 MG/M2, DAY 1 EVERY 21 DAYS
     Route: 042
     Dates: start: 20100610
  3. BEVACIZUMAB [Suspect]
     Indication: NON-SMALL CELL LUNG CANCER
     Dosage: 7.5 MG/KG, DAY 1 EVERY 21 DAYS
     Route: 042
     Dates: start: 20100610
  4. MCP [Concomitant]
     Indication: NAUSEA
     Dates: start: 20100611
  5. LORAZEPAM [Concomitant]
     Indication: PAIN
     Dates: start: 20100613
  6. SODIUM PICOSULFATE [Concomitant]
     Indication: CONSTIPATION
     Dates: start: 20100629
  7. MORPHINE [Concomitant]
     Indication: PAIN
     Dates: start: 20100614

REACTIONS (3)
  - COMA [None]
  - DEHYDRATION [None]
  - PNEUMONIA ASPIRATION [None]
